FAERS Safety Report 20714456 (Version 1)
Quarter: 2022Q2

REPORT INFORMATION
  Report Type: Spontaneous
  Country: FR (occurrence: FR)
  Receive Date: 20220415
  Receipt Date: 20220415
  Transmission Date: 20220721
  Serious: Yes (Other)
  Sender: FDA-Public Use
  Company Number: FR-MYLANLABS-2022M1027015

PATIENT
  Age: 19 Year
  Sex: Female
  Weight: 69 kg

DRUGS (3)
  1. ARIPIPRAZOLE [Suspect]
     Active Substance: ARIPIPRAZOLE
     Indication: Psychotic disorder
     Dosage: 10 MILLIGRAM
     Route: 065
     Dates: end: 20180614
  2. OXAZEPAM [Concomitant]
     Active Substance: OXAZEPAM
     Indication: Agitation
     Dosage: UNK
     Route: 065
  3. OXAZEPAM [Concomitant]
     Active Substance: OXAZEPAM
     Indication: Anxiety

REACTIONS (4)
  - Symptom recurrence [Recovering/Resolving]
  - Negativism [Recovering/Resolving]
  - Anxiety [Recovering/Resolving]
  - Aggression [Recovering/Resolving]
